FAERS Safety Report 8554407-1 (Version None)
Quarter: 2012Q3

REPORT INFORMATION
  Report Type: 
  Country: None (occurrence: None)
  Receive Date: 20120731
  Receipt Date: 20120723
  Transmission Date: 20120928
  Serious: Yes (Hospitalization, Other)
  Sender: FDA-Public Use
  Company Number: US-009507513-1207USA009724

PATIENT

DRUGS (16)
  1. AMITRIPTYLINE HCL [Suspect]
     Dosage: 100 MG, UNK
  2. LEVOTHYROXINE SODIUM [Suspect]
     Dosage: 150 MG, UNK
  3. HYDROMORPHINE HYDROCHLORIDE [Suspect]
     Dosage: 20 MG, BID
     Route: 048
  4. METOPROLOL TARTRATE [Concomitant]
  5. ASPIRIN [Concomitant]
  6. ZOCOR [Suspect]
     Dosage: 40 MG, UNK
     Route: 048
  7. FENTANYL CITRATE [Concomitant]
  8. DIAZEPAM [Suspect]
     Dosage: 5 MG, BID
  9. ANASTROZOLE [Concomitant]
  10. FLUOXETINE HCL [Suspect]
     Dosage: 40 MG, UNK
     Route: 048
  11. ALPRAZOLAM [Suspect]
     Dosage: 0.5 MG, UNK
  12. DIPYRONE MAGNESIUM [Concomitant]
  13. LORAZEPAM [Suspect]
     Dosage: 2 MG, EVERY FEW HOURS
     Route: 048
  14. NITROGLYCERIN [Concomitant]
  15. GABAPENTIN [Suspect]
     Dosage: 900 MG, OVER 3 DAYS UP TO 900MG PER DAY
  16. POLYETHYLENE GLYCOL [Concomitant]

REACTIONS (13)
  - COGNITIVE DISORDER [None]
  - DELIRIUM [None]
  - HYPOTENSION [None]
  - HALLUCINATION, VISUAL [None]
  - THROMBOCYTOPENIA [None]
  - RENAL FAILURE [None]
  - BLOOD CULTURE POSITIVE [None]
  - ARTHRALGIA [None]
  - HEMIPARESIS [None]
  - PAIN IN EXTREMITY [None]
  - PNEUMONIA [None]
  - AGITATION [None]
  - SEPSIS [None]
